FAERS Safety Report 16501690 (Version 1)
Quarter: 2019Q3

REPORT INFORMATION
  Report Type: Spontaneous
  Country: US (occurrence: US)
  Receive Date: 20190701
  Receipt Date: 20190701
  Transmission Date: 20191004
  Serious: Yes (Other)
  Sender: FDA-Public Use
  Company Number: US-PFIZER INC-2019267789

PATIENT
  Age: 43 Year
  Sex: Female

DRUGS (1)
  1. ELELYSO [Suspect]
     Active Substance: TALIGLUCERASE ALFA
     Dosage: 5600 IU, WEEKLY
     Route: 042
     Dates: start: 20190606

REACTIONS (2)
  - Hiatus hernia [Unknown]
  - Off label use [Unknown]
